FAERS Safety Report 24727684 (Version 1)
Quarter: 2024Q4

REPORT INFORMATION
  Report Type: Spontaneous
  Country: US (occurrence: None)
  Receive Date: 20241212
  Receipt Date: 20241212
  Transmission Date: 20250114
  Serious: Yes (Hospitalization)
  Sender: Public
  Company Number: None

PATIENT
  Age: 48 Year
  Sex: Female

DRUGS (2)
  1. KETAMINE [Suspect]
     Active Substance: KETAMINE
     Indication: Bipolar disorder
     Dosage: FREQUENCY : 4 TIMES A DAY;?
     Route: 048
  2. KETAMINE [Suspect]
     Active Substance: KETAMINE
     Indication: Mania

REACTIONS (5)
  - Acute psychosis [None]
  - Depressive symptom [None]
  - Poor quality sleep [None]
  - Decreased appetite [None]
  - Thrombosis [None]

NARRATIVE: CASE EVENT DATE: 20240216
